FAERS Safety Report 23645947 (Version 2)
Quarter: 2024Q1

REPORT INFORMATION
  Report Type: Report from Study
  Country: IT (occurrence: IT)
  Receive Date: 20240319
  Receipt Date: 20240325
  Transmission Date: 20240410
  Serious: Yes (Other)
  Sender: FDA-Public Use
  Company Number: IT-CELLTRION INC.-2024IT006275

PATIENT

DRUGS (12)
  1. ADALIMUMAB [Suspect]
     Active Substance: ADALIMUMAB\ISOPROPYL ALCOHOL
     Indication: Uveitis
     Route: 065
  2. ADALIMUMAB [Suspect]
     Active Substance: ADALIMUMAB\ISOPROPYL ALCOHOL
     Indication: Juvenile idiopathic arthritis
     Dosage: 20 MG EVERY TWO WEEKS
  3. ADALIMUMAB [Suspect]
     Active Substance: ADALIMUMAB\ISOPROPYL ALCOHOL
     Dosage: 20 MG WEEKLY
  4. ADALIMUMAB [Suspect]
     Active Substance: ADALIMUMAB\ISOPROPYL ALCOHOL
     Dosage: 40 MG EVERY TWO WEEKS
  5. TOCILIZUMAB [Suspect]
     Active Substance: TOCILIZUMAB
     Indication: Uveitis
     Dosage: 162 MG, EVERY 2 WEEKS (DURATION OF THERAPY WITH SUBCUTANEOUS TOCILIZUMAB (MONTHS): 14)
     Route: 058
     Dates: start: 202110
  6. TOCILIZUMAB [Suspect]
     Active Substance: TOCILIZUMAB
     Indication: Juvenile idiopathic arthritis
     Dosage: 162 MG, EVERY 1 WEEK (DURATION OF THERAPY WITH SUBCUTANEOUS TOCILIZUMAB (MONTHS): 14)
     Route: 058
  7. METHOTREXATE [Suspect]
     Active Substance: METHOTREXATE
     Indication: Uveitis
     Route: 065
  8. METHOTREXATE [Suspect]
     Active Substance: METHOTREXATE
     Indication: Juvenile idiopathic arthritis
     Dosage: 15 MG/M2 WEEKLY
  9. METHOTREXATE [Suspect]
     Active Substance: METHOTREXATE
     Dosage: 20 MG EVERY TWO WEEKS
  10. METHOTREXATE [Suspect]
     Active Substance: METHOTREXATE
     Dosage: 20 MG WEEKLY
  11. METHOTREXATE [Suspect]
     Active Substance: METHOTREXATE
     Dosage: 40 MG EVERY TWO WEEKS
  12. METHOTREXATE [Suspect]
     Active Substance: METHOTREXATE
     Dosage: 5 MG PER OS WEEKLY

REACTIONS (3)
  - Hypertriglyceridaemia [Recovered/Resolved]
  - Treatment failure [Unknown]
  - Intentional product use issue [Unknown]
